FAERS Safety Report 21372069 (Version 1)
Quarter: 2022Q3

REPORT INFORMATION
  Report Type: Spontaneous
  Country: CN (occurrence: None)
  Receive Date: 20220923
  Receipt Date: 20220923
  Transmission Date: 20221027
  Serious: Yes (Other)
  Sender: FDA-Public Use
  Company Number: 2022A326064

PATIENT
  Age: 24645 Day
  Sex: Female
  Weight: 70 kg

DRUGS (1)
  1. TICAGRELOR [Suspect]
     Active Substance: TICAGRELOR
     Indication: Myocardial ischaemia
     Route: 048
     Dates: start: 20200903, end: 20220903

REACTIONS (3)
  - Musculoskeletal stiffness [Unknown]
  - Blood uric acid increased [Unknown]
  - Gout [Unknown]

NARRATIVE: CASE EVENT DATE: 20220903
